FAERS Safety Report 13247739 (Version 1)
Quarter: 2017Q1

REPORT INFORMATION
  Report Type: Spontaneous
  Country: DE (occurrence: DE)
  Receive Date: 20170217
  Receipt Date: 20170217
  Transmission Date: 20170428
  Serious: Yes (Hospitalization, Other)
  Sender: FDA-Public Use
  Company Number: DE-MYLANLABS-2017M1008992

PATIENT

DRUGS (3)
  1. NAFTIDROFURYL [Concomitant]
     Active Substance: NAFRONYL
     Indication: PRODUCT USED FOR UNKNOWN INDICATION
     Route: 065
  2. CLOPIDOGREL [Concomitant]
     Active Substance: CLOPIDOGREL BISULFATE
     Indication: PRODUCT USED FOR UNKNOWN INDICATION
     Route: 065
  3. VINORELBINE [Suspect]
     Active Substance: VINORELBINE\VINORELBINE TARTRATE
     Indication: NON-SMALL CELL LUNG CANCER
     Route: 042
     Dates: start: 201405

REACTIONS (7)
  - Facial paralysis [Unknown]
  - Ischaemic cerebral infarction [Recovering/Resolving]
  - Hemianopia [Not Recovered/Not Resolved]
  - Acute myocardial infarction [Recovering/Resolving]
  - Ischaemic stroke [Recovering/Resolving]
  - Hemiplegia [Unknown]
  - Hemiparesis [Not Recovered/Not Resolved]
